FAERS Safety Report 6575179-6 (Version None)
Quarter: 2010Q1

REPORT INFORMATION
  Report Type: 
  Country: None (occurrence: None)
  Receive Date: 20100209
  Receipt Date: 20100128
  Transmission Date: 20100710
  Serious: Yes (Death, Hospitalization)
  Sender: FDA-Public Use
  Company Number: JP-BAYER-200913380BYL

PATIENT
  Age: 75 Year
  Sex: Female
  Weight: 40 kg

DRUGS (6)
  1. NEXAVAR [Suspect]
     Indication: HEPATIC NEOPLASM MALIGNANT
     Dosage: TOTAL DAILY DOSE: 800 MG  UNIT DOSE: 200 MG
     Route: 048
     Dates: start: 20090902, end: 20090914
  2. ADALAT CC [Concomitant]
     Indication: BLOOD PRESSURE INCREASED
     Dosage: UNIT DOSE: 20 MG
     Route: 048
     Dates: start: 20090903
  3. OXYCONTIN [Concomitant]
     Route: 048
  4. HYPEN [Concomitant]
     Route: 048
  5. NOVAMIN [Concomitant]
     Route: 048
  6. BUP-4 [Concomitant]
     Route: 048

REACTIONS (10)
  - ASPARTATE AMINOTRANSFERASE INCREASED [None]
  - BLOOD BILIRUBIN INCREASED [None]
  - DISEASE PROGRESSION [None]
  - GLOSSODYNIA [None]
  - HEPATIC ENCEPHALOPATHY [None]
  - HEPATIC FUNCTION ABNORMAL [None]
  - HEPATIC NEOPLASM MALIGNANT [None]
  - HYPOPHAGIA [None]
  - PARAESTHESIA ORAL [None]
  - RASH [None]
